FAERS Safety Report 14676117 (Version 1)
Quarter: 2018Q1

REPORT INFORMATION
  Report Type: Report from Study
  Country: DK (occurrence: DK)
  Receive Date: 20180323
  Receipt Date: 20180323
  Transmission Date: 20180509
  Serious: Yes (Other)
  Sender: FDA-Public Use
  Company Number: DK-TEVA-2018-DK-870917

PATIENT
  Age: 40 Year
  Sex: Female
  Weight: 54 kg

DRUGS (3)
  1. KLORZOXAZON DAK [Suspect]
     Active Substance: CHLORZOXAZONE
     Indication: MUSCLE TIGHTNESS
     Dosage: STRENGTH: 250 MG.
     Route: 048
  2. OXYCODONHYDROCHLORID LANNACHER [Suspect]
     Active Substance: OXYCODONE HYDROCHLORIDE
     Indication: BACK PAIN
     Dosage: STRENGTH: 5 MG.
     Route: 048
  3. TRAMADOL ACTAVIS [Suspect]
     Active Substance: TRAMADOL
     Indication: BACK PAIN
     Dosage: STRENGTH: 50 MG.?DOSAGE: THE PATIENT IS ESCALATED BEFORE DISCONTINUATION.
     Route: 048

REACTIONS (6)
  - Muscle twitching [Recovered/Resolved]
  - Drug dependence [Recovered/Resolved]
  - Abdominal pain upper [Recovered/Resolved]
  - Hyperhidrosis [Recovered/Resolved]
  - Feeling cold [Recovered/Resolved]
  - Withdrawal syndrome [Recovered/Resolved]
